FAERS Safety Report 20208883 (Version 1)
Quarter: 2021Q4

REPORT INFORMATION
  Report Type: Spontaneous
  Country: US (occurrence: US)
  Receive Date: 20211220
  Receipt Date: 20211220
  Transmission Date: 20220304
  Serious: No
  Sender: FDA-Public Use
  Company Number: US-PFIZER INC-202101254636

PATIENT
  Age: 49 Year
  Sex: Female

DRUGS (1)
  1. XELJANZ XR [Suspect]
     Active Substance: TOFACITINIB CITRATE
     Indication: Rheumatoid arthritis
     Dosage: 11 MG, DAILY
     Route: 048
     Dates: start: 20210728

REACTIONS (4)
  - Therapeutic response unexpected [Unknown]
  - Arthralgia [Recovering/Resolving]
  - Musculoskeletal stiffness [Recovering/Resolving]
  - Fatigue [Recovering/Resolving]
